FAERS Safety Report 12273541 (Version 1)
Quarter: 2016Q2

REPORT INFORMATION
  Report Type: Spontaneous
  Country: BR (occurrence: BR)
  Receive Date: 20160415
  Receipt Date: 20160415
  Transmission Date: 20160815
  Serious: Yes (Hospitalization)
  Sender: FDA-Public Use
  Company Number: BR-B.I. PHARMACEUTICALS,INC./RIDGEFIELD-2016-BI-17601BR

PATIENT
  Age: 55 Year
  Sex: Male
  Weight: 73 kg

DRUGS (6)
  1. CIALIS [Concomitant]
     Active Substance: TADALAFIL
     Indication: ERECTILE DYSFUNCTION
     Dosage: 5 MG
     Route: 048
     Dates: start: 2015
  2. TRAYENTA DUO [Suspect]
     Active Substance: LINAGLIPTIN\METFORMIN HYDROCHLORIDE
     Indication: TYPE 2 DIABETES MELLITUS
     Dosage: DOSE PER APPLICATION: 2.5+850 MG AND DAILY DOSE: 5+1700 MG
     Route: 048
     Dates: start: 20140812
  3. LYPODIINN [Concomitant]
     Indication: ERECTILE DYSFUNCTION
     Route: 048
     Dates: start: 201508
  4. ATORVASTATINA [Concomitant]
     Active Substance: ATORVASTATIN
     Indication: BLOOD CHOLESTEROL INCREASED
     Dosage: 10 MG
     Route: 048
     Dates: start: 2010
  5. CILOSTAZOL. [Concomitant]
     Active Substance: CILOSTAZOL
     Indication: CEREBROVASCULAR ACCIDENT
     Dosage: 200 MG
     Route: 048
     Dates: start: 2015
  6. ASPIRINA PREVENT [Concomitant]
     Active Substance: ASPIRIN
     Indication: CEREBROVASCULAR ACCIDENT
     Dosage: 100 MG
     Route: 048
     Dates: start: 1993

REACTIONS (2)
  - Weight decreased [Not Recovered/Not Resolved]
  - Cerebrovascular accident [Recovered/Resolved]

NARRATIVE: CASE EVENT DATE: 201409
